FAERS Safety Report 9505151 (Version 4)
Quarter: 2014Q1

REPORT INFORMATION
  Report Type: Spontaneous
  Country: JP (occurrence: JP)
  Receive Date: 20130906
  Receipt Date: 20140130
  Transmission Date: 20141002
  Serious: Yes (Hospitalization, Other)
  Sender: FDA-Public Use
  Company Number: JP-GILEAD-2013-0080929

PATIENT
  Sex: Male
  Weight: 59 kg

DRUGS (8)
  1. GASTER D [Concomitant]
     Indication: LIVER TRANSPLANT
     Dosage: 20 MG, QD
     Route: 048
     Dates: start: 200706
  2. MICARDIS [Concomitant]
     Indication: PRODUCT USED FOR UNKNOWN INDICATION
     Route: 048
  3. HEPSERA [Suspect]
     Indication: ANTIVIRAL PROPHYLAXIS
     Dosage: 10 MG, QD
     Route: 048
     Dates: start: 200705, end: 20130707
  4. HEPSERA [Suspect]
     Dosage: 10 MG, QOD
     Route: 048
     Dates: start: 20130708
  5. HEPSERA [Suspect]
     Dosage: 2 DF, Q1WK
     Route: 048
     Dates: start: 20130731
  6. ZEFIX                              /01221401/ [Concomitant]
     Indication: ANTIVIRAL PROPHYLAXIS
     Dosage: 50 MG, QD
     Route: 048
     Dates: start: 200207
  7. GRACEPTOR [Concomitant]
     Indication: LIVER TRANSPLANT
     Dosage: 1 MG, QD
     Route: 048
  8. PREDONINE                          /00016201/ [Concomitant]
     Indication: LIVER TRANSPLANT
     Dosage: 5 MG, QD
     Route: 048

REACTIONS (15)
  - Kidney fibrosis [Unknown]
  - Renal tubular atrophy [Unknown]
  - Tubulointerstitial nephritis [Unknown]
  - Pain [Recovering/Resolving]
  - Chest pain [Unknown]
  - Gait disturbance [Unknown]
  - Renal tubular disorder [Unknown]
  - Fanconi syndrome acquired [Not Recovered/Not Resolved]
  - Osteomalacia [Unknown]
  - Hypophosphataemia [Not Recovered/Not Resolved]
  - Renal impairment [Recovering/Resolving]
  - Musculoskeletal chest pain [Unknown]
  - Musculoskeletal pain [Unknown]
  - Back pain [Unknown]
  - Osteoporosis [Not Recovered/Not Resolved]
